FAERS Safety Report 10397275 (Version 1)
Quarter: 2014Q3

REPORT INFORMATION
  Report Type: Spontaneous
  Country: JP (occurrence: JP)
  Receive Date: 20140820
  Receipt Date: 20140820
  Transmission Date: 20150326
  Serious: No
  Sender: FDA-Public Use
  Company Number: PHHY2014JP102391

PATIENT
  Age: 58 Year
  Sex: Male

DRUGS (3)
  1. DASATINIB [Suspect]
     Active Substance: DASATINIB
  2. TASIGNA [Suspect]
     Active Substance: NILOTINIB
     Indication: CHRONIC MYELOID LEUKAEMIA
     Dosage: UNK
  3. GLIVEC [Suspect]
     Active Substance: IMATINIB MESYLATE

REACTIONS (3)
  - Pleural effusion [Unknown]
  - Rash [Unknown]
  - Thrombocytopenia [Unknown]
